FAERS Safety Report 8100352-5 (Version None)
Quarter: 2012Q1

REPORT INFORMATION
  Report Type: 
  Country: None (occurrence: None)
  Receive Date: 20120129
  Receipt Date: 20070721
  Transmission Date: 20120608
  Serious: Yes (Other)
  Sender: FDA-Public Use
  Company Number: JP-SANTEN INC.-INC-11-000218

PATIENT
  Sex: Female

DRUGS (3)
  1. BORIC ACID [Concomitant]
     Route: 047
     Dates: end: 20070615
  2. LEVOFLOXACIN [Suspect]
     Dosage: 6 TIMES DAILY
     Route: 047
     Dates: start: 20070605, end: 20070615
  3. PIRENOXINE [Concomitant]
     Route: 047
     Dates: end: 20070615

REACTIONS (5)
  - CORNEAL DISORDER [None]
  - BLISTER [None]
  - PUNCTATE KERATITIS [None]
  - CORNEAL EROSION [None]
  - KERATITIS [None]
